FAERS Safety Report 5207308-0 (Version None)
Quarter: 2007Q1

REPORT INFORMATION
  Report Type: 
  Country: None (occurrence: None)
  Receive Date: 20070110
  Receipt Date: 20070102
  Transmission Date: 20070707
  Serious: Yes (Death, Other)
  Sender: FDA-Public Use
  Company Number: 2006US001740

PATIENT
  Age: 64 Year
  Sex: Male

DRUGS (9)
  1. AMBISOME [Suspect]
     Indication: BRONCHOPULMONARY ASPERGILLOSIS
     Dosage: 150 MG, UID/QD, IV DRIP; SEE IMAGE
     Route: 041
     Dates: start: 20060706, end: 20060710
  2. RYTHMODAN R (DISOPYRAMIDE PHOSPHATE) [Suspect]
     Indication: DRUG USE FOR UNKNOWN INDICATION
  3. FUNGUARD (MICAFUNGIN SODIUM) [Concomitant]
  4. MEROPEN (MEROPENEM) [Concomitant]
  5. AMIKACIN SULFATE [Concomitant]
  6. VENOGLOBULIN [Concomitant]
  7. ALBUMIN (HUMAN) [Concomitant]
  8. LASIX [Concomitant]
  9. RED BLOOD CELLS [Concomitant]

REACTIONS (9)
  - ATRIAL FIBRILLATION [None]
  - BLOOD PRESSURE INCREASED [None]
  - CARDIAC ARREST [None]
  - CHILLS [None]
  - FLUSHING [None]
  - HYPOTHERMIA [None]
  - TREMOR [None]
  - VENTRICULAR FIBRILLATION [None]
  - VENTRICULAR TACHYCARDIA [None]
